FAERS Safety Report 17529296 (Version 1)
Quarter: 2020Q1

REPORT INFORMATION
  Report Type: Spontaneous
  Country: CA (occurrence: CA)
  Receive Date: 20200311
  Receipt Date: 20200311
  Transmission Date: 20200409
  Serious: Yes (Death, Hospitalization, Other)
  Sender: FDA-Public Use
  Company Number: CA-NOVOPROD-715467

PATIENT
  Sex: Male
  Weight: 124.74 kg

DRUGS (1)
  1. SAXENDA [Suspect]
     Active Substance: LIRAGLUTIDE
     Indication: BODY MASS INDEX INCREASED
     Dosage: 3 MG, QD
     Route: 058
     Dates: start: 201807

REACTIONS (4)
  - Septic shock [Fatal]
  - Cholangiocarcinoma [Fatal]
  - Pancreatitis [Fatal]
  - Cholangitis [Unknown]

NARRATIVE: CASE EVENT DATE: 201903
